FAERS Safety Report 6203604-9 (Version None)
Quarter: 2009Q2

REPORT INFORMATION
  Report Type: 
  Country: None (occurrence: None)
  Receive Date: 20090522
  Receipt Date: 20090522
  Transmission Date: 20091009
  Serious: Yes (Other)
  Sender: FDA-Public Use
  Company Number: None

PATIENT
  Age: 8 Year
  Sex: Male
  Weight: 38.5557 kg

DRUGS (2)
  1. BACTRIM [Suspect]
     Indication: ARTHROPOD BITE
     Dosage: 20 ML PO
     Route: 048
     Dates: start: 20090426, end: 20090505
  2. BENADRYL [Concomitant]

REACTIONS (2)
  - RASH [None]
  - URTICARIA [None]
